FAERS Safety Report 6983360-7 (Version None)
Quarter: 2010Q3

REPORT INFORMATION
  Report Type: 
  Country: None (occurrence: None)
  Receive Date: 20100914
  Receipt Date: 20100831
  Transmission Date: 20110219
  Serious: Yes (Other)
  Sender: FDA-Public Use
  Company Number: PHHY2010US58678

PATIENT
  Sex: Female

DRUGS (11)
  1. RECLAST [Suspect]
     Indication: OSTEOPOROSIS
     Dosage: 5 MG, ONCE YEARLY
     Route: 042
     Dates: start: 20100824
  2. LOTENSIN [Concomitant]
     Dosage: 20MG, QD
  3. ZANAFLEX [Concomitant]
     Dosage: 6MG TID
  4. RELAFEN [Concomitant]
     Dosage: 200MG QD
  5. AMBIEN [Concomitant]
     Dosage: 10MG QHS
  6. XENICAL [Concomitant]
     Dosage: 120MG TID
  7. ZOCOR [Concomitant]
     Dosage: 40MG QD
  8. TRICOR [Concomitant]
     Dosage: 145MG QD
  9. LOVAZA [Concomitant]
     Dosage: 2GMS, BID
  10. NEXIUM [Concomitant]
     Dosage: 40MG QD
  11. ANTIVERT [Concomitant]
     Dosage: 25MG

REACTIONS (11)
  - ACTIVITIES OF DAILY LIVING IMPAIRED [None]
  - ARTHRALGIA [None]
  - CHEST PAIN [None]
  - DECREASED APPETITE [None]
  - DIPLOPIA [None]
  - DYSPNOEA [None]
  - ELECTROCARDIOGRAM ABNORMAL [None]
  - GAIT DISTURBANCE [None]
  - MYALGIA [None]
  - PAIN IN JAW [None]
  - VERTIGO [None]
